FAERS Safety Report 6836621-6 (Version None)
Quarter: 2010Q3

REPORT INFORMATION
  Report Type: 
  Country: None (occurrence: None)
  Receive Date: 20100708
  Receipt Date: 20100623
  Transmission Date: 20110219
  Serious: Yes (Hospitalization)
  Sender: FDA-Public Use
  Company Number: 2010002602

PATIENT
  Age: 66 Year
  Sex: Male

DRUGS (8)
  1. ERLOTINIB HYDROCHLORIDE [Suspect]
     Indication: MYELODYSPLASTIC SYNDROME
     Dosage: (150 MG,QD),ORAL
     Route: 048
     Dates: start: 20100330, end: 20100621
  2. COENZYME [Concomitant]
  3. Q10 (UBIDECARENONE) [Concomitant]
  4. COMPAZINE (PROCHLORPERAZINE  BESYLATE) [Concomitant]
  5. VALSARTAN [Concomitant]
  6. ACETAMINOPHEN [Concomitant]
  7. RESTORIL [Concomitant]
  8. METOPROLOL SUCCINATE [Concomitant]

REACTIONS (3)
  - CHEST PAIN [None]
  - DYSPNOEA [None]
  - LOCALISED INFECTION [None]
